FAERS Safety Report 8348948-X (Version None)
Quarter: 2012Q2

REPORT INFORMATION
  Report Type: 
  Country: None (occurrence: None)
  Receive Date: 20120508
  Receipt Date: 20120430
  Transmission Date: 20120825
  Serious: Yes (Other)
  Sender: FDA-Public Use
  Company Number: 2012SP009935

PATIENT
  Age: 15 Year
  Sex: Female

DRUGS (1)
  1. NEXPLANON [Suspect]
     Indication: PRODUCT USED FOR UNKNOWN INDICATION
     Dates: start: 20120217

REACTIONS (4)
  - PSYCHOTIC BEHAVIOUR [None]
  - PROCEDURAL COMPLICATION [None]
  - AGGRESSION [None]
  - VOMITING [None]
